FAERS Safety Report 4398881-3 (Version None)
Quarter: 2004Q3

REPORT INFORMATION
  Report Type: 
  Country: None (occurrence: None)
  Receive Date: 20040712
  Receipt Date: 20040701
  Transmission Date: 20050211
  Serious: Yes (Disabling)
  Sender: FDA-Public Use
  Company Number: 2004UW07202

PATIENT
  Age: 46 Year
  Sex: Male
  Weight: 71.6683 kg

DRUGS (8)
  1. SEROQUEL [Suspect]
     Indication: SCHIZOPHRENIA
     Dosage: 500 MG PO
     Route: 048
     Dates: start: 20020604, end: 20030411
  2. SEROQUEL [Suspect]
     Indication: SCHIZOPHRENIA
     Dosage: 400 MG PO
     Route: 048
  3. SEROQUEL [Suspect]
     Indication: SCHIZOPHRENIA
     Dosage: 300 MG PO
     Route: 048
  4. TYLENOL W/ CODEINE NO. 2 [Concomitant]
  5. TYLENOL W/ CODEINE NO. 3 [Concomitant]
  6. FLUOXETINE [Concomitant]
  7. FOSINOPRIL SODIUM [Concomitant]
  8. HYDROCHLOROTHIAZIDE [Concomitant]

REACTIONS (4)
  - DRUG INEFFECTIVE [None]
  - FALL [None]
  - LOSS OF CONSCIOUSNESS [None]
  - ORTHOSTATIC HYPOTENSION [None]
